FAERS Safety Report 5140325-8 (Version None)
Quarter: 2006Q4

REPORT INFORMATION
  Report Type: 
  Country: None (occurrence: None)
  Receive Date: 20061031
  Receipt Date: 20060911
  Transmission Date: 20070319
  Serious: Yes (Death, Hospitalization)
  Sender: FDA-Public Use
  Company Number: JP-MERCK-0609USA02940

PATIENT
  Age: 84 Year
  Sex: Female
  Weight: 38 kg

DRUGS (29)
  1. PRIMAXIN [Suspect]
     Indication: PYREXIA
     Route: 042
     Dates: start: 20060908, end: 20060911
  2. PRIMAXIN [Suspect]
     Route: 042
     Dates: start: 20060907, end: 20060907
  3. PRIMAXIN [Suspect]
     Indication: C-REACTIVE PROTEIN INCREASED
     Route: 042
     Dates: start: 20060908, end: 20060911
  4. PRIMAXIN [Suspect]
     Route: 042
     Dates: start: 20060907, end: 20060907
  5. ALEVIATIN [Suspect]
     Indication: EPILEPSY
     Route: 042
     Dates: start: 20060910, end: 20060915
  6. PANALDINE [Concomitant]
     Route: 048
     Dates: end: 20060912
  7. GASTER D [Concomitant]
     Route: 048
     Dates: end: 20060912
  8. ASPIRIN [Concomitant]
     Route: 048
     Dates: end: 20060912
  9. PURSENNID [Concomitant]
     Route: 048
  10. SELBEX [Concomitant]
     Route: 048
     Dates: end: 20060912
  11. MEXITIL [Concomitant]
     Route: 048
     Dates: end: 20060912
  12. HERBESSER [Concomitant]
     Route: 048
  13. LOXONIN [Concomitant]
     Indication: PAIN
     Route: 048
  14. CYTOTEC [Concomitant]
     Indication: PAIN
     Route: 048
  15. DEXTROSE [Concomitant]
     Route: 042
  16. DEXTROSE [Concomitant]
     Route: 042
  17. [THERAPY UNSPECIFIED] [Concomitant]
     Route: 042
  18. SODIUM CHLORIDE [Concomitant]
     Route: 042
  19. MULTI-VITAMINS [Concomitant]
     Route: 042
  20. [THERAPY UNSPECIFIED] [Concomitant]
     Route: 042
  21. PANTHENOL [Concomitant]
     Route: 042
  22. HEPARIN SODIUM [Concomitant]
     Route: 042
  23. HEPARIN SODIUM [Concomitant]
     Route: 042
  24. PREDOPA [Concomitant]
     Route: 042
     Dates: start: 20060908, end: 20060914
  25. ALBUMIN HUMAN [Concomitant]
     Route: 042
  26. PRIMPERAN TAB [Concomitant]
     Route: 042
  27. PHENYTOIN SODIUM [Suspect]
     Indication: EPILEPSY
     Route: 048
     Dates: start: 20060820, end: 20060909
  28. FESIN [Concomitant]
     Route: 042
     Dates: end: 20060910
  29. HERBESSER [Concomitant]
     Route: 042
     Dates: start: 20060909, end: 20060915

REACTIONS (5)
  - BRADYCARDIA [None]
  - CARDIAC ARREST [None]
  - DRUG INTERACTION [None]
  - DRUG LEVEL DECREASED [None]
  - EPILEPSY [None]
